FAERS Safety Report 9852665 (Version 1)
Quarter: 2014Q1

REPORT INFORMATION
  Report Type: Spontaneous
  Country: US (occurrence: None)
  Receive Date: 20140128
  Receipt Date: 20140128
  Transmission Date: 20141002
  Serious: Yes (Disabling)
  Sender: FDA-Public Use
  Company Number: None

PATIENT
  Age: 66 Year
  Sex: Female
  Weight: 68.04 kg

DRUGS (2)
  1. CIPROFLOXACIN HCL [Suspect]
     Indication: URINARY TRACT INFECTION
     Route: 048
     Dates: start: 20130916, end: 20130919
  2. CIPROFLOXACIN HCL [Suspect]
     Indication: DRUG RESISTANCE
     Route: 048
     Dates: start: 20130916, end: 20130919

REACTIONS (12)
  - Arthritis [None]
  - Activities of daily living impaired [None]
  - Pain in extremity [None]
  - Local swelling [None]
  - Tendonitis [None]
  - Muscle spasms [None]
  - Inflammation [None]
  - Musculoskeletal pain [None]
  - Pain [None]
  - Depression [None]
  - Thinking abnormal [None]
  - Tendon disorder [None]
